FAERS Safety Report 6033046-0 (Version None)
Quarter: 2009Q1

REPORT INFORMATION
  Report Type: 
  Country: None (occurrence: None)
  Receive Date: 20090109
  Receipt Date: 20081231
  Transmission Date: 20090719
  Serious: Yes (Death)
  Sender: FDA-Public Use
  Company Number: US-ABBOTT-09P-163-0495760-00

PATIENT
  Age: 22 Year
  Sex: Female

DRUGS (1)
  1. VALPROATE SODIUM [Suspect]
     Indication: INTENTIONAL OVERDOSE
     Dosage: UNKNOWN
     Route: 048

REACTIONS (8)
  - BLOOD BICARBONATE DECREASED [None]
  - BRADYCARDIA [None]
  - BRAIN OEDEMA [None]
  - BRAIN STEM INFARCTION [None]
  - COMA [None]
  - INTENTIONAL OVERDOSE [None]
  - PULMONARY FUNCTION TEST DECREASED [None]
  - TACHYCARDIA [None]
